FAERS Safety Report 21058936 (Version 1)
Quarter: 2022Q3

REPORT INFORMATION
  Report Type: Other
  Country: CN (occurrence: None)
  Receive Date: 20220708
  Receipt Date: 20220708
  Transmission Date: 20221027
  Serious: Yes (Hospitalization)
  Sender: FDA-Public Use
  Company Number: CN-ROCHE-3132263

PATIENT
  Sex: Female
  Weight: 1.26 kg

DRUGS (24)
  1. TAMIFLU [Suspect]
     Active Substance: OSELTAMIVIR PHOSPHATE
     Indication: Product used for unknown indication
     Route: 064
  2. CEFACLOR [Suspect]
     Active Substance: CEFACLOR
     Indication: Product used for unknown indication
     Route: 064
  3. FUROSEMIDE [Suspect]
     Active Substance: FUROSEMIDE
     Indication: Product used for unknown indication
     Route: 064
  4. FUROSEMIDE [Suspect]
     Active Substance: FUROSEMIDE
     Indication: Pulmonary arterial hypertension
  5. POTASSIUM CHLORIDE [Suspect]
     Active Substance: POTASSIUM CHLORIDE
     Indication: Product used for unknown indication
     Route: 064
  6. POTASSIUM CHLORIDE [Suspect]
     Active Substance: POTASSIUM CHLORIDE
     Indication: Pulmonary arterial hypertension
  7. UNSPECIFIED INGREDIENT [Suspect]
     Active Substance: UNSPECIFIED INGREDIENT
     Indication: Product used for unknown indication
     Route: 064
  8. UNSPECIFIED INGREDIENT [Suspect]
     Active Substance: UNSPECIFIED INGREDIENT
     Indication: Pulmonary arterial hypertension
     Dosage: (5,000 U PER 12 HOURS).
     Route: 058
  9. REMODULIN [Suspect]
     Active Substance: TREPROSTINIL
     Indication: Product used for unknown indication
     Dosage: INFUSION WAS TITRATED TO A LOW DOSE OF 0.45-TO-0.9 NG/KG/MIN.
     Route: 064
  10. REMODULIN [Suspect]
     Active Substance: TREPROSTINIL
     Indication: Pulmonary arterial hypertension
     Dosage: TITRATED TO A HIGHER DOSE OF 1.0-1.2 NG/KG/MIN (FOR PERSISTENT BUT MILD HEADACHE) IN COMBINATION WIT
     Route: 065
  11. REMODULIN [Suspect]
     Active Substance: TREPROSTINIL
     Dosage: AT A DOSE OF 1.0-TO-2.0 NG/KG/MIN THROUGHOUT THE ANESTHESIA.
     Route: 065
  12. REMODULIN [Suspect]
     Active Substance: TREPROSTINIL
     Dosage: (2.0 NG/KG/MIN)
     Route: 065
  13. SILDENAFIL [Suspect]
     Active Substance: SILDENAFIL
     Indication: Product used for unknown indication
     Route: 064
  14. LIDOCAINE [Suspect]
     Active Substance: LIDOCAINE
     Indication: Product used for unknown indication
     Dosage: 3 ML OF 2% LIDOCAINE GIVEN AS A TEST DOSE.
     Route: 064
  15. LIDOCAINE [Suspect]
     Active Substance: LIDOCAINE
     Dosage: FOLLOWED BY A MIXTURE OF 0.5% ROPIVACAINE AND 1% LIDOCAINE (10 ML IN TOTAL) GIVEN TEN MINUTES LATER.
     Route: 065
  16. ROPIVACAINE [Suspect]
     Active Substance: ROPIVACAINE
     Indication: Product used for unknown indication
     Dosage: FOLLOWED BY A MIXTURE OF 0.5% ROPIVACAINE AND 1% LIDOCAINE (10 ML IN TOTAL) GIVEN TEN MINUTES LATER.
     Route: 064
  17. EPINEPHRINE [Suspect]
     Active Substance: EPINEPHRINE
     Indication: Product used for unknown indication
     Dosage: AT 0.01-0.02 MG/KG/MIN
     Route: 064
  18. NOREPINEPHRINE [Suspect]
     Active Substance: NOREPINEPHRINE
     Indication: Product used for unknown indication
     Dosage: (0.01-0.05 MG/KG/MIN)
     Route: 064
  19. OXYCODONE [Concomitant]
     Active Substance: OXYCODONE
     Indication: Analgesic therapy
     Route: 065
  20. SUFENTANIL [Concomitant]
     Active Substance: SUFENTANIL
     Route: 065
  21. LEVOSIMENDAN [Concomitant]
     Active Substance: LEVOSIMENDAN
     Route: 065
  22. AMBRISENTAN [Concomitant]
     Active Substance: AMBRISENTAN
     Route: 065
  23. PREDNISONE [Concomitant]
     Active Substance: PREDNISONE
     Route: 065
  24. HYDROXYCHLOROQUINE [Concomitant]
     Active Substance: HYDROXYCHLOROQUINE
     Route: 065

REACTIONS (3)
  - Low birth weight baby [Unknown]
  - Premature delivery [Unknown]
  - Foetal exposure during pregnancy [Unknown]
